FAERS Safety Report 20488734 (Version 1)
Quarter: 2022Q1

REPORT INFORMATION
  Report Type: 
  Country: US (occurrence: US)
  Receive Date: 20220218
  Receipt Date: 20220218
  Transmission Date: 20220423
  Serious: No
  Sender: FDA-Public Use
  Company Number: US-BIOCON-BCN-2021-000964

PATIENT
  Sex: Female

DRUGS (1)
  1. EVEROLIMUS [Suspect]
     Active Substance: EVEROLIMUS
     Indication: Product used for unknown indication
     Route: 048

REACTIONS (5)
  - Lip swelling [Unknown]
  - Lip pruritus [Unknown]
  - Glossodynia [Unknown]
  - Pruritus [Unknown]
  - Drug hypersensitivity [Unknown]
